FAERS Safety Report 9566027 (Version 1)
Quarter: 2013Q3

REPORT INFORMATION
  Report Type: Spontaneous
  Country: FR (occurrence: FR)
  Receive Date: 20130930
  Receipt Date: 20130930
  Transmission Date: 20140515
  Serious: Yes (Life-Threatening, Hospitalization, Other)
  Sender: FDA-Public Use
  Company Number: FR-PFIZER INC-2013274433

PATIENT
  Age: 70 Year
  Sex: Male

DRUGS (11)
  1. SIMVASTATIN [Suspect]
     Dosage: UNK
     Route: 048
     Dates: end: 20130422
  2. AMLOR [Suspect]
     Dosage: UNK
     Route: 048
  3. LYRICA [Suspect]
     Dosage: UNK
     Route: 048
  4. INTELENCE [Suspect]
     Dosage: UNK
     Route: 048
     Dates: end: 20130726
  5. ISENTRESS [Suspect]
     Dosage: UNK
     Route: 048
  6. NISISCO [Suspect]
     Dosage: UNK
     Route: 048
     Dates: end: 20130708
  7. KARDEGIC [Suspect]
     Dosage: UNK
     Route: 048
  8. TARDYFERON [Suspect]
     Dosage: UNK
     Route: 048
  9. MOVICOL [Suspect]
     Dosage: UNK
     Route: 048
  10. SPECIAFOLDINE [Suspect]
     Dosage: UNK
     Route: 048
  11. KIVEXA [Suspect]
     Dosage: UNK
     Route: 048
     Dates: end: 20130708

REACTIONS (8)
  - Pancytopenia [Not Recovered/Not Resolved]
  - Renal failure [Recovering/Resolving]
  - Granulomatous liver disease [Not Recovered/Not Resolved]
  - Cholestasis [Not Recovered/Not Resolved]
  - Pyrexia [Recovering/Resolving]
  - Tooth avulsion [Unknown]
  - Angina pectoris [Unknown]
  - Myelodysplastic syndrome [Unknown]
